FAERS Safety Report 6369909-6 (Version None)
Quarter: 2009Q3

REPORT INFORMATION
  Report Type: 
  Country: None (occurrence: None)
  Receive Date: 20090923
  Receipt Date: 20070515
  Transmission Date: 20100115
  Serious: Yes (Other)
  Sender: FDA-Public Use
  Company Number: US-ASTRAZENECA-2006UW10872

PATIENT
  Sex: Female
  Weight: 102.1 kg

DRUGS (15)
  1. SEROQUEL [Suspect]
     Indication: BIPOLAR DISORDER
     Dosage: 25 - 200 MG
     Route: 048
     Dates: start: 20000415
  2. SEROQUEL [Suspect]
     Route: 048
     Dates: start: 20000101, end: 20030101
  3. RISPERDAL [Suspect]
     Route: 048
     Dates: start: 20030301
  4. RISPERDAL [Suspect]
     Route: 065
     Dates: start: 20030101
  5. ABILIFY [Concomitant]
     Route: 065
     Dates: start: 20040101
  6. ABILIFY [Concomitant]
     Route: 048
  7. HALDOL [Concomitant]
     Route: 065
     Dates: start: 19850101
  8. PROLIXIN [Concomitant]
     Route: 065
     Dates: start: 19940101
  9. PROLIXIN [Concomitant]
     Route: 048
  10. CLONAZEPAM [Concomitant]
     Route: 048
  11. SINGULAIR [Concomitant]
     Route: 048
  12. DIPHENHYDRAMINE HCL [Concomitant]
     Route: 048
  13. HYDROCODONE [Concomitant]
     Route: 048
  14. PENLAC [Concomitant]
     Route: 048
  15. COGENTIN [Concomitant]
     Route: 048

REACTIONS (2)
  - METABOLIC SYNDROME [None]
  - NEUROLEPTIC MALIGNANT SYNDROME [None]
